FAERS Safety Report 21772397 (Version 1)
Quarter: 2022Q4

REPORT INFORMATION
  Report Type: Spontaneous
  Country: US (occurrence: US)
  Receive Date: 20221223
  Receipt Date: 20221223
  Transmission Date: 20230113
  Serious: Yes (Other)
  Sender: FDA-Public Use
  Company Number: US-sptaiwan-2022SUN003419

PATIENT
  Age: 11 Year
  Sex: Female

DRUGS (2)
  1. LATUDA [Suspect]
     Active Substance: LURASIDONE HYDROCHLORIDE
     Indication: Product used for unknown indication
     Dosage: 80 MG
     Route: 048
  2. LATUDA [Suspect]
     Active Substance: LURASIDONE HYDROCHLORIDE
     Dosage: 100 MG, QD (80 MG TABLET PLUS 20 MG TABLET)
     Route: 048

REACTIONS (4)
  - Hallucination, auditory [Unknown]
  - Hallucination, visual [Unknown]
  - Psychotic disorder [Unknown]
  - Off label use [Unknown]
